FAERS Safety Report 8422390-5 (Version None)
Quarter: 2012Q2

REPORT INFORMATION
  Report Type: 
  Country: None (occurrence: None)
  Receive Date: 20120608
  Receipt Date: 20120607
  Transmission Date: 20120825
  Serious: Yes (Hospitalization)
  Sender: FDA-Public Use
  Company Number: PHHO2011US16515

PATIENT
  Sex: Male
  Weight: 75.737 kg

DRUGS (5)
  1. PLACEBO [Suspect]
     Indication: GOUTY ARTHRITIS
     Dosage: CODE NOT BROKEN
     Dates: start: 20110809
  2. TRIAMCINOLONE ACETONIDE [Suspect]
     Indication: GOUTY ARTHRITIS
     Dosage: CODE NOT BROKEN
     Dates: start: 20110809
  3. ILARIS [Suspect]
     Dosage: CODE NOT BROKEN
     Dates: start: 20110809
  4. BLINDED NO TREATMENT RECEIVED [Suspect]
     Indication: GOUTY ARTHRITIS
     Dosage: CODE NOT BROKEN
     Dates: start: 20110809
  5. ILARIS [Suspect]
     Indication: GOUTY ARTHRITIS
     Dosage: CODE NOT BROKEN
     Dates: start: 20110809

REACTIONS (2)
  - STAPHYLOCOCCAL INFECTION [None]
  - BURSITIS [None]
